FAERS Safety Report 20920490 (Version 1)
Quarter: 2022Q2

REPORT INFORMATION
  Report Type: Spontaneous
  Country: US (occurrence: None)
  Receive Date: 20220606
  Receipt Date: 20220606
  Transmission Date: 20220721
  Serious: Yes (Hospitalization)
  Sender: FDA-Public Use
  Company Number: None

PATIENT
  Sex: Male

DRUGS (3)
  1. ERIVEDGE [Suspect]
     Active Substance: VISMODEGIB
     Indication: Basal cell carcinoma
     Dosage: FREQUENCY : DAILY;?
     Route: 048
     Dates: start: 20210122
  2. ERIVEDGE CAP [Concomitant]
  3. HYDROCHLOROT TAB [Concomitant]

REACTIONS (6)
  - Dermatitis [None]
  - Therapy interrupted [None]
  - Alopecia [None]
  - Alopecia [None]
  - Muscle spasms [None]
  - Myalgia [None]
